FAERS Safety Report 7350023-8 (Version None)
Quarter: 2011Q1

REPORT INFORMATION
  Report Type: 
  Country: None (occurrence: None)
  Receive Date: 20110314
  Receipt Date: 20110304
  Transmission Date: 20110831
  Serious: Yes (Other)
  Sender: FDA-Public Use
  Company Number: JP-ROCHE-764305

PATIENT
  Age: 67 Year
  Sex: Female
  Weight: 58 kg

DRUGS (4)
  1. GASLON N [Concomitant]
     Dosage: DOSE FORM: PERORAL AGENT, DOSAGE IS UNCERTAIN
     Route: 048
  2. HERCEPTIN [Suspect]
     Indication: BREAST CANCER METASTATIC
     Dosage: NOTE: DOSAGE IS UNCERTAIN
     Route: 041
  3. XELODA [Suspect]
     Indication: BREAST CANCER METASTATIC
     Route: 048
     Dates: start: 20110112, end: 20110202
  4. PYDOXAL [Concomitant]
     Dosage: DOSAGE IS UNCERTAIN
     Route: 048

REACTIONS (1)
  - ENTEROCOLITIS HAEMORRHAGIC [None]
